FAERS Safety Report 21990641 (Version 1)
Quarter: 2023Q1

REPORT INFORMATION
  Report Type: Spontaneous
  Country: CN (occurrence: CN)
  Receive Date: 20230214
  Receipt Date: 20230214
  Transmission Date: 20230417
  Serious: Yes (Other)
  Sender: FDA-Public Use
  Company Number: CN-GLAXOSMITHKLINE-CN2023GSK021883

PATIENT

DRUGS (8)
  1. NIRAPARIB [Suspect]
     Active Substance: NIRAPARIB
     Indication: Ovarian epithelial cancer
     Dosage: 100 MG, QD
     Dates: start: 202010, end: 202104
  2. NIRAPARIB [Suspect]
     Active Substance: NIRAPARIB
     Dosage: 200 MG, QD
     Dates: start: 202105, end: 202110
  3. NIRAPARIB [Suspect]
     Active Substance: NIRAPARIB
     Dosage: 200 MG, QD
     Route: 048
     Dates: start: 202110
  4. CISPLATIN + DOXORUBICIN [Concomitant]
     Indication: Ovarian epithelial cancer
     Dosage: 3 UNK
  5. CATEQUENTINIB [Suspect]
     Active Substance: CATEQUENTINIB
     Indication: Ovarian epithelial cancer
     Dosage: 10 MG, QD
     Route: 048
     Dates: start: 202010, end: 202104
  6. CATEQUENTINIB [Suspect]
     Active Substance: CATEQUENTINIB
     Dosage: 10 MG, QD
     Route: 048
     Dates: start: 202105, end: 202110
  7. MEGESTROL [Suspect]
     Active Substance: MEGESTROL
     Indication: Ovarian epithelial cancer
     Dosage: 160 MG
     Dates: start: 202105, end: 202110
  8. LETROZOLE [Suspect]
     Active Substance: LETROZOLE
     Indication: Ovarian epithelial cancer
     Dosage: 2.5 MG
     Dates: start: 202110

REACTIONS (1)
  - Renal impairment [Recovered/Resolved]
